FAERS Safety Report 15383950 (Version 3)
Quarter: 2019Q1

REPORT INFORMATION
  Report Type: Spontaneous
  Country: US (occurrence: US)
  Receive Date: 20180914
  Receipt Date: 20190207
  Transmission Date: 20190417
  Serious: No
  Sender: FDA-Public Use
  Company Number: US-AMGEN-USASP2018126324

PATIENT
  Age: 48 Year
  Sex: Male

DRUGS (6)
  1. METHOTREXATE. [Concomitant]
     Active Substance: METHOTREXATE
     Dosage: 7.5 MG, QWK
     Dates: end: 2005
  2. ALEFACEPT [Concomitant]
     Active Substance: ALEFACEPT
     Indication: PSORIATIC ARTHROPATHY
     Dosage: 15 MG, QWK
     Route: 030
     Dates: start: 200412, end: 200503
  3. ETANERCEPT [Suspect]
     Active Substance: ETANERCEPT
     Indication: PSORIATIC ARTHROPATHY
     Dosage: 50 MG, QWK
     Route: 058
     Dates: start: 200403, end: 2004
  4. ALEFACEPT [Concomitant]
     Active Substance: ALEFACEPT
     Indication: PSORIASIS
  5. ETANERCEPT [Suspect]
     Active Substance: ETANERCEPT
     Indication: PSORIASIS
     Dosage: 50 MG, 2 TIMES/WK
     Route: 058
     Dates: start: 2004, end: 200410
  6. ETANERCEPT [Suspect]
     Active Substance: ETANERCEPT
     Dosage: 50 MG, QWK
     Route: 058
     Dates: start: 200410

REACTIONS (1)
  - Drug ineffective [Unknown]
